FAERS Safety Report 18146652 (Version 1)
Quarter: 2020Q3

REPORT INFORMATION
  Report Type: Spontaneous
  Country: DE (occurrence: DE)
  Receive Date: 20200813
  Receipt Date: 20200813
  Transmission Date: 20201103
  Serious: Yes (Hospitalization)
  Sender: FDA-Public Use
  Company Number: DE-PFIZER INC-2020308285

PATIENT
  Age: 59 Year
  Sex: Female

DRUGS (5)
  1. CITALOPRAM [Suspect]
     Active Substance: CITALOPRAM HYDROBROMIDE
     Dosage: UNK
  2. PREGABALIN. [Suspect]
     Active Substance: PREGABALIN
     Dosage: 150 MG, 2X/DAY (1?0?0?1)
  3. FUROSEMID [Concomitant]
     Active Substance: FUROSEMIDE
     Dosage: UNK (20 MG)
  4. CIATYL?Z (ZUCLOPENTHIXOL DECANOATE) [Suspect]
     Active Substance: ZUCLOPENTHIXOL DECANOATE
     Dosage: UNK (3 ML, EVERY 14 DAYS, PRE?FILLED SYRINGES)
  5. LEVOTHYROXINE SODIUM. [Concomitant]
     Active Substance: LEVOTHYROXINE SODIUM
     Dosage: 75 UG, 1X/DAY (1?0?0?0)

REACTIONS (2)
  - Fall [Unknown]
  - Dizziness [Unknown]
